FAERS Safety Report 11216432 (Version 2)
Quarter: 2015Q3

REPORT INFORMATION
  Report Type: Report from Study
  Country: TH (occurrence: TH)
  Receive Date: 20150624
  Receipt Date: 20150722
  Transmission Date: 20151125
  Serious: Yes (Hospitalization, Other)
  Sender: FDA-Public Use
  Company Number: TH-MERCK-1504THA021997

PATIENT
  Age: 49 Year
  Sex: Male

DRUGS (4)
  1. LOPINAVIR (+) RITONAVIR [Concomitant]
     Active Substance: LOPINAVIR\RITONAVIR
     Indication: HIV INFECTION
     Dosage: TOTAL DAILY DOSE: 800/200 MG, BID
     Route: 048
     Dates: start: 20141104
  2. ABACAVIR SULFATE (+) LAMIVUDINE [Concomitant]
     Active Substance: ABACAVIR SULFATE\LAMIVUDINE
     Indication: HIV INFECTION
     Dosage: TOTAL DAILY DOSE: 600/300 MG, ONCE DAILY
     Route: 048
     Dates: start: 20141224
  3. RIBAVIRIN. [Suspect]
     Active Substance: RIBAVIRIN
     Indication: HEPATITIS C
     Dosage: 200 MG, BID
     Route: 048
     Dates: start: 20141229, end: 20150527
  4. PEGINTERFERON ALFA-2B [Suspect]
     Active Substance: PEGINTERFERON ALFA-2B
     Indication: HEPATITIS C
     Dosage: STRENGTH :80, FREQUENCY: WEEKLY, TOTAL DAILY DOSE: 0.3 (UNITS NOT PROVIDED), FORMULATION PEN
     Route: 058
     Dates: start: 20141229, end: 20150527

REACTIONS (2)
  - Haemoptysis [Recovered/Resolved]
  - Pulmonary tuberculosis [Not Recovered/Not Resolved]

NARRATIVE: CASE EVENT DATE: 20150417
